FAERS Safety Report 7447477-5 (Version None)
Quarter: 2011Q2

REPORT INFORMATION
  Report Type: 
  Country: None (occurrence: None)
  Receive Date: 20110429
  Receipt Date: 20110418
  Transmission Date: 20111010
  Serious: No
  Sender: FDA-Public Use
  Company Number: B0714627A

PATIENT
  Age: 8 Year

DRUGS (1)
  1. RELENZA [Suspect]
     Indication: ANTIVIRAL PROPHYLAXIS
     Dosage: 30MG PER DAY
     Route: 055
     Dates: start: 20110416

REACTIONS (1)
  - OVERDOSE [None]
